FAERS Safety Report 13103709 (Version 3)
Quarter: 2018Q1

REPORT INFORMATION
  Report Type: Spontaneous
  Country: US (occurrence: US)
  Receive Date: 20170111
  Receipt Date: 20180223
  Transmission Date: 20180508
  Serious: No
  Sender: FDA-Public Use
  Company Number: US-CELGENEUS-USA-2017011641

PATIENT
  Age: 57 Year
  Sex: Male

DRUGS (4)
  1. CHANTIX [Concomitant]
     Active Substance: VARENICLINE TARTRATE
     Indication: SMOKING CESSATION THERAPY
     Route: 065
  2. OTEZLA [Suspect]
     Active Substance: APREMILAST
     Indication: PSORIASIS
     Dosage: 60 MILLIGRAM
     Route: 048
     Dates: start: 20160302
  3. LISINOPRIL. [Concomitant]
     Active Substance: LISINOPRIL
     Indication: HYPERTENSION
     Dosage: 10 MILLIGRAM
     Route: 048
  4. OTEZLA [Suspect]
     Active Substance: APREMILAST
     Dosage: 30 MILLIGRAM
     Route: 048

REACTIONS (3)
  - Incorrect dose administered [Unknown]
  - Drug dose omission [Unknown]
  - Psoriasis [Recovering/Resolving]

NARRATIVE: CASE EVENT DATE: 201801
